FAERS Safety Report 8200265-4 (Version None)
Quarter: 2012Q1

REPORT INFORMATION
  Report Type: 
  Country: None (occurrence: None)
  Receive Date: 20120312
  Receipt Date: 20120307
  Transmission Date: 20120608
  Serious: Yes (Other)
  Sender: FDA-Public Use
  Company Number: JP-PFIZER INC-2012061483

PATIENT
  Age: 55 Year
  Sex: Male

DRUGS (3)
  1. ACARBOSE [Concomitant]
     Dosage: UNK
  2. VOGLIBOSE [Concomitant]
     Dosage: UNK
  3. VARENICLINE TARTRATE [Suspect]
     Dosage: UNK
     Route: 048

REACTIONS (3)
  - FLATULENCE [None]
  - HAEMORRHAGE [None]
  - COLITIS ISCHAEMIC [None]
